FAERS Safety Report 24395181 (Version 1)
Quarter: 2024Q4

REPORT INFORMATION
  Report Type: Spontaneous
  Country: FR (occurrence: FR)
  Receive Date: 20241004
  Receipt Date: 20241004
  Transmission Date: 20250115
  Serious: Yes (Hospitalization)
  Sender: CHEPLAPHARM
  Company Number: None

PATIENT
  Age: 67 Year
  Sex: Female

DRUGS (19)
  1. CLONAZEPAM [Suspect]
     Active Substance: CLONAZEPAM
     Indication: Neuralgia
     Dosage: 3DROPS 3/D = 0. 9MG/D?DAILY DOSE: 0.9 MILLIGRAM
     Route: 048
     Dates: start: 20240201, end: 20240203
  2. CLONAZEPAM [Suspect]
     Active Substance: CLONAZEPAM
     Indication: Neuralgia
     Dosage: 3DROPS 3/D = 0. 9MG/D?DAILY DOSE: 0.9 MILLIGRAM
     Route: 048
     Dates: start: 20240209, end: 20240223
  3. NEURONTIN [Suspect]
     Active Substance: GABAPENTIN
     Indication: Neuralgia
     Dosage: DAILY DOSE: 100 MILLIGRAM
     Route: 048
     Dates: start: 20240203, end: 20240223
  4. NEURONTIN [Suspect]
     Active Substance: GABAPENTIN
     Indication: Neuralgia
     Dosage: 100MG 3X/D?DAILY DOSE: 300 MILLIGRAM
     Route: 048
  5. ACETAMINOPHEN\BELLADONNA LEAF\CAFFEINE\OPIUM [Suspect]
     Active Substance: ACETAMINOPHEN\BELLADONNA LEAF\CAFFEINE\OPIUM
     Indication: Neuralgia
     Dosage: DAILY DOSE: 6 DOSAGE FORM
     Route: 048
     Dates: start: 20240110, end: 20240204
  6. ACETAMINOPHEN\BELLADONNA LEAF\CAFFEINE\OPIUM [Suspect]
     Active Substance: ACETAMINOPHEN\BELLADONNA LEAF\CAFFEINE\OPIUM
     Indication: Neuralgia
     Dosage: DAILY DOSE: 6 DOSAGE FORM
     Route: 048
     Dates: start: 20240208, end: 20240221
  7. LYRICA [Suspect]
     Active Substance: PREGABALIN
     Indication: Neuralgia
     Dosage: DAILY DOSE: 25 MILLIGRAM
     Route: 048
     Dates: start: 20240203, end: 20240223
  8. ACUPAN [Suspect]
     Active Substance: NEFOPAM HYDROCHLORIDE
     Dosage: DAILY DOSE: 3 DOSAGE FORM
     Route: 048
     Dates: start: 20240105, end: 20240221
  9. OXYCODONE [Suspect]
     Active Substance: OXYCODONE
     Dosage: 5MG 4/D?DAILY DOSE: 20 MILLIGRAM
     Route: 048
     Dates: start: 20240110, end: 20240111
  10. OXYCODONE [Suspect]
     Active Substance: OXYCODONE
     Dosage: 5MG 4/D?DAILY DOSE: 20 MILLIGRAM
     Route: 048
     Dates: start: 20240116, end: 20240130
  11. INSULIN GLARGINE [Suspect]
     Active Substance: INSULIN GLARGINE
     Dosage: DAILY DOSE: 26 IU (INTERNATIONAL UNIT)
     Route: 058
  12. NOVORAPID [Suspect]
     Active Substance: INSULIN ASPART
     Dosage: DAILY DOSE: 6 IU (INTERNATIONAL UNIT)
     Route: 058
  13. AMIODARONE [Suspect]
     Active Substance: AMIODARONE
     Dosage: DAILY DOSE: 200 MILLIGRAM
     Route: 048
  14. CETIRIZINE [Suspect]
     Active Substance: CETIRIZINE HYDROCHLORIDE
     Dosage: DAILY DOSE: 10 MILLIGRAM
     Route: 048
  15. URSODIOL [Suspect]
     Active Substance: URSODIOL
     Dosage: DAILY DOSE: 750 MILLIGRAM
     Route: 048
  16. IMOVANE [Suspect]
     Active Substance: ZOPICLONE
     Dosage: DAILY DOSE: 3.75 MILLIGRAM
     Route: 048
  17. PANTOPRAZOLE [Suspect]
     Active Substance: PANTOPRAZOLE
     Dosage: DAILY DOSE: 40 MILLIGRAM
     Route: 048
  18. PROGRAF [Suspect]
     Active Substance: TACROLIMUS
     Dosage: 0.5MG 2X/D ?DAILY DOSE: 1 MILLIGRAM
     Route: 048
  19. RENAGEL [Suspect]
     Active Substance: SEVELAMER HYDROCHLORIDE
     Dosage: ORALLY, 800MG 2X/D ?DAILY DOSE: 1600 MILLIGRAM
     Route: 048

REACTIONS (2)
  - Hepatic encephalopathy [Recovered/Resolved]
  - Off label use [Recovered/Resolved]

NARRATIVE: CASE EVENT DATE: 20240209
